FAERS Safety Report 9790228 (Version 1)
Quarter: 2013Q4

REPORT INFORMATION
  Report Type: Spontaneous
  Country: BR (occurrence: BR)
  Receive Date: 20131231
  Receipt Date: 20131231
  Transmission Date: 20140711
  Serious: Yes (Hospitalization)
  Sender: FDA-Public Use
  Company Number: BR-SA-2013SA134183

PATIENT
  Age: 71 Year
  Sex: Female
  Weight: 55 kg

DRUGS (2)
  1. LANTUS [Suspect]
     Indication: DIABETES MELLITUS
     Dosage: 20 IU IN MORNING AND 10 IU AT NIGHT
     Route: 058
     Dates: start: 2011
  2. ARADOIS H [Concomitant]
     Indication: BLOOD PRESSURE
     Dosage: DOSE: 1 TABLET DAILY
     Route: 048

REACTIONS (3)
  - Spinal disorder [Recovering/Resolving]
  - Gait disturbance [Recovering/Resolving]
  - Off label use [Unknown]
